FAERS Safety Report 11540490 (Version 1)
Quarter: 2015Q3

REPORT INFORMATION
  Report Type: Spontaneous
  Country: US (occurrence: US)
  Receive Date: 20150923
  Receipt Date: 20150923
  Transmission Date: 20151125
  Serious: No
  Sender: FDA-Public Use
  Company Number: US-BEH-2015048128

PATIENT
  Age: 52 Year
  Sex: Male
  Weight: 78 kg

DRUGS (40)
  1. ZYRTEC D ALLERGY AND CONGESTION [Concomitant]
     Active Substance: CETIRIZINE HYDROCHLORIDE\PSEUDOEPHEDRINE HYDROCHLORIDE
  2. SODIUM CHLORIDE. [Concomitant]
     Active Substance: SODIUM CHLORIDE
  3. NORCO [Concomitant]
     Active Substance: ACETAMINOPHEN\HYDROCODONE BITARTRATE
  4. RELPAX [Concomitant]
     Active Substance: ELETRIPTAN HYDROBROMIDE
  5. VITAMIN D3 [Concomitant]
     Active Substance: CHOLECALCIFEROL
  6. VITAMIN D [Concomitant]
     Active Substance: CHOLECALCIFEROL
  7. DEXTROSE. [Concomitant]
     Active Substance: DEXTROSE
  8. PATANOL [Concomitant]
     Active Substance: OLOPATADINE HYDROCHLORIDE
  9. SINGULAIR [Concomitant]
     Active Substance: MONTELUKAST SODIUM
  10. ASPIRIN. [Concomitant]
     Active Substance: ASPIRIN
  11. TUSSIN [Concomitant]
     Active Substance: GUAIFENESIN
  12. FLUNISOLIDE. [Concomitant]
     Active Substance: FLUNISOLIDE
  13. WELCHOL [Concomitant]
     Active Substance: COLESEVELAM HYDROCHLORIDE
  14. EFFEXOR XR [Concomitant]
     Active Substance: VENLAFAXINE HYDROCHLORIDE
  15. CLARINEX [Concomitant]
     Active Substance: DESLORATADINE
  16. DIPHENHYDRAMINE. [Concomitant]
     Active Substance: DIPHENHYDRAMINE
  17. EPIPEN [Concomitant]
     Active Substance: EPINEPHRINE
  18. INDERAL LA [Concomitant]
     Active Substance: PROPRANOLOL HYDROCHLORIDE
  19. SYNTHROID [Concomitant]
     Active Substance: LEVOTHYROXINE SODIUM
  20. CLONAZEPAM. [Concomitant]
     Active Substance: CLONAZEPAM
  21. ADVIL [Concomitant]
     Active Substance: IBUPROFEN
  22. L-LYSINE [Concomitant]
     Active Substance: LYSINE
  23. NORMAL SALINE [Concomitant]
     Active Substance: SODIUM CHLORIDE
  24. PROTONIX [Concomitant]
     Active Substance: PANTOPRAZOLE SODIUM
  25. ACETAMINOPHEN. [Concomitant]
     Active Substance: ACETAMINOPHEN
  26. AMITRIPTYLINE [Concomitant]
     Active Substance: AMITRIPTYLINE
  27. PRIVIGEN [Suspect]
     Active Substance: HUMAN IMMUNOGLOBULIN G
     Indication: IMMUNODEFICIENCY COMMON VARIABLE
  28. MULTIVITAMIN [Concomitant]
     Active Substance: VITAMINS
  29. ZOFRAN [Concomitant]
     Active Substance: ONDANSETRON HYDROCHLORIDE
  30. TRANSDERM SCOP [Concomitant]
     Active Substance: SCOPOLAMINE
  31. PROAIR HFA [Concomitant]
     Active Substance: ALBUTEROL SULFATE
  32. NORVASC [Concomitant]
     Active Substance: AMLODIPINE BESYLATE
  33. VITAMIN C [Concomitant]
     Active Substance: ASCORBIC ACID
  34. METHYLPREDNISOLONE. [Concomitant]
     Active Substance: METHYLPREDNISOLONE
  35. OMNARIS [Concomitant]
     Active Substance: CICLESONIDE
  36. RESTASIS [Concomitant]
     Active Substance: CYCLOSPORINE
  37. PRIVIGEN [Suspect]
     Active Substance: HUMAN IMMUNOGLOBULIN G
     Indication: HYPOTHYROIDISM
     Route: 042
  38. OFLOXACIN. [Concomitant]
     Active Substance: OFLOXACIN
  39. LEVAQUIN [Concomitant]
     Active Substance: LEVOFLOXACIN
  40. ASCORBIC ACID. [Concomitant]
     Active Substance: ASCORBIC ACID

REACTIONS (1)
  - Joint injury [Unknown]

NARRATIVE: CASE EVENT DATE: 201412
